FAERS Safety Report 23378945 (Version 3)
Quarter: 2024Q2

REPORT INFORMATION
  Report Type: Spontaneous
  Country: US (occurrence: US)
  Receive Date: 20240108
  Receipt Date: 20240401
  Transmission Date: 20240716
  Serious: No
  Sender: FDA-Public Use
  Company Number: US-Calliditas-2023CAL01739

PATIENT
  Age: 53 Year
  Sex: Female

DRUGS (2)
  1. TARPEYO [Suspect]
     Active Substance: BUDESONIDE
     Indication: IgA nephropathy
     Dosage: 16 MG (4 MG CAPSULES) ONCE DAILY
     Route: 048
     Dates: start: 20230712
  2. LOSARTAN [Concomitant]
     Active Substance: LOSARTAN

REACTIONS (4)
  - Blood parathyroid hormone increased [Not Recovered/Not Resolved]
  - Hirsutism [Not Recovered/Not Resolved]
  - Swelling face [Not Recovered/Not Resolved]
  - Staphylococcal infection [Unknown]

NARRATIVE: CASE EVENT DATE: 20231120
